FAERS Safety Report 5106537-4 (Version None)
Quarter: 2006Q3

REPORT INFORMATION
  Report Type: 
  Country: None (occurrence: None)
  Receive Date: 20060912
  Receipt Date: 20060824
  Transmission Date: 20061208
  Serious: Yes (Other)
  Sender: FDA-Public Use
  Company Number: GB200608000651

PATIENT
  Age: 49 Year

DRUGS (5)
  1. PEMETREXED [Suspect]
     Dates: start: 20060526
  2. PEMETREXED [Suspect]
     Dates: start: 20060623
  3. PEMETREXED [Suspect]
     Dates: start: 20060714
  4. PEMETREXED [Suspect]
     Dates: start: 20060811
  5. CISPLATIN [Concomitant]

REACTIONS (1)
  - BLOOD MAGNESIUM DECREASED [None]
